FAERS Safety Report 18767835 (Version 1)
Quarter: 2021Q1

REPORT INFORMATION
  Report Type: Spontaneous
  Country: CN (occurrence: CN)
  Receive Date: 20210121
  Receipt Date: 20210121
  Transmission Date: 20210419
  Serious: Yes (Hospitalization, Other)
  Sender: FDA-Public Use
  Company Number: CN-LUPIN PHARMACEUTICALS INC.-2021-00348

PATIENT
  Age: 76 Year
  Sex: Female

DRUGS (3)
  1. MOXIFLOXACIN HYDROCHLORIDE. [Suspect]
     Active Substance: MOXIFLOXACIN HYDROCHLORIDE
     Indication: PNEUMONIA BACTERIAL
     Dosage: 0.4 GRAM, QD, 250ML
     Route: 042
     Dates: start: 20190820, end: 20190823
  2. LINEZOLID. [Suspect]
     Active Substance: LINEZOLID
     Indication: PNEUMONIA BACTERIAL
     Dosage: 0.6 GRAM, BID
     Route: 042
     Dates: start: 20190816, end: 20190820
  3. IMIPENEM AND CILASTATIN [Suspect]
     Active Substance: CILASTATIN SODIUM\IMIPENEM
     Indication: PNEUMONIA BACTERIAL
     Dosage: 1 GRAM, TID
     Route: 042
     Dates: start: 20190814, end: 20190826

REACTIONS (2)
  - Therapy non-responder [Unknown]
  - Hepatic encephalopathy [Unknown]

NARRATIVE: CASE EVENT DATE: 201908
